FAERS Safety Report 9136139 (Version 1)
Quarter: 2013Q1

REPORT INFORMATION
  Report Type: Spontaneous
  Country: US (occurrence: US)
  Receive Date: 20130304
  Receipt Date: 20130304
  Transmission Date: 20140127
  Serious: No
  Sender: FDA-Public Use
  Company Number: US-ABBOTT-12P-163-0989784-00

PATIENT
  Sex: Male
  Weight: 102.15 kg

DRUGS (6)
  1. ANDROGEL [Suspect]
     Indication: BLOOD TESTOSTERONE DECREASED
     Route: 061
     Dates: start: 2009
  2. DIOVAN [Concomitant]
     Indication: HYPERTENSION
  3. ADVAIR [Concomitant]
     Indication: ASTHMA
  4. ASTEPRO [Concomitant]
     Indication: ASTHMA
     Route: 045
  5. UNKNOWN RESCUE INHALER [Concomitant]
     Indication: ASTHMA
     Route: 055
  6. SINGULAIR [Concomitant]
     Indication: ASTHMA

REACTIONS (6)
  - Snoring [Not Recovered/Not Resolved]
  - Dyspnoea [Not Recovered/Not Resolved]
  - Choking [Not Recovered/Not Resolved]
  - Mood swings [Not Recovered/Not Resolved]
  - Asthma [Not Recovered/Not Resolved]
  - Respiratory disorder [Not Recovered/Not Resolved]
